FAERS Safety Report 7700834-1 (Version None)
Quarter: 2011Q3

REPORT INFORMATION
  Report Type: 
  Country: None (occurrence: None)
  Receive Date: 20110822
  Receipt Date: 20110817
  Transmission Date: 20111222
  Serious: Yes (Other)
  Sender: FDA-Public Use
  Company Number: US-ROCHE-797544

PATIENT
  Age: 73 Year
  Sex: Female

DRUGS (1)
  1. BONIVA [Suspect]
     Route: 065

REACTIONS (6)
  - JAW CYST [None]
  - PAIN [None]
  - TOOTHACHE [None]
  - PAIN IN JAW [None]
  - FIBROMYALGIA [None]
  - TOOTH EXTRACTION [None]
